FAERS Safety Report 13819249 (Version 1)
Quarter: 2017Q3

REPORT INFORMATION
  Report Type: Report from Study
  Country: US (occurrence: US)
  Receive Date: 20170731
  Receipt Date: 20170731
  Transmission Date: 20171127
  Serious: No
  Sender: FDA-Public Use
  Company Number: US-EXELIXIS-CABO-17007932

PATIENT
  Age: 56 Year
  Sex: Male
  Weight: 129.25 kg

DRUGS (24)
  1. CABOMETYX [Suspect]
     Active Substance: CABOZANTINIB S-MALATE
     Indication: RENAL CANCER
  2. IOPHEN-C NR [Concomitant]
     Active Substance: CODEINE PHOSPHATE\GUAIFENESIN
  3. INLYTA [Concomitant]
     Active Substance: AXITINIB
  4. LOVENOX [Concomitant]
     Active Substance: ENOXAPARIN SODIUM
  5. TRAZODONE [Concomitant]
     Active Substance: TRAZODONE HYDROCHLORIDE
  6. OXYCONTIN [Concomitant]
     Active Substance: OXYCODONE HYDROCHLORIDE
  7. LIPODERM [Concomitant]
     Active Substance: BACLOFEN\CYCLOBENZAPRINE\DICLOFENAC\GABAPENTIN\TETRACAINE
  8. LORAZEPAM. [Concomitant]
     Active Substance: LORAZEPAM
  9. BENADRYL [Concomitant]
     Active Substance: DIPHENHYDRAMINE HYDROCHLORIDE
  10. PRILOSEC [Concomitant]
     Active Substance: OMEPRAZOLE MAGNESIUM
  11. CABOMETYX [Suspect]
     Active Substance: CABOZANTINIB S-MALATE
     Indication: LUNG NEOPLASM MALIGNANT
     Dosage: 60 MG, QD
     Route: 048
     Dates: start: 20170104
  12. AMLODIPINE BESYLATE. [Concomitant]
     Active Substance: AMLODIPINE BESYLATE
  13. GABAPENTIN. [Concomitant]
     Active Substance: GABAPENTIN
  14. PROTONIX [Concomitant]
     Active Substance: PANTOPRAZOLE SODIUM
  15. LACTULOSE. [Concomitant]
     Active Substance: LACTULOSE
  16. COLACE [Concomitant]
     Active Substance: DOCUSATE SODIUM
  17. NICODERM CQ [Concomitant]
     Active Substance: NICOTINE
  18. VENTOLIN HFA [Concomitant]
     Active Substance: ALBUTEROL SULFATE
  19. PRAVACHOL [Concomitant]
     Active Substance: PRAVASTATIN SODIUM
  20. TYLENOL [Concomitant]
     Active Substance: ACETAMINOPHEN
  21. OXYCODONE [Concomitant]
     Active Substance: OXYCODONE
  22. AZITHROMYCIN ANHYDROUS. [Concomitant]
     Active Substance: AZITHROMYCIN ANHYDROUS
  23. HYDRALAZINE [Concomitant]
     Active Substance: HYDRALAZINE HYDROCHLORIDE
  24. TAMSULOSIN HCL [Concomitant]
     Active Substance: TAMSULOSIN

REACTIONS (5)
  - Off label use [Unknown]
  - Fatigue [Unknown]
  - Nausea [Recovering/Resolving]
  - Somnolence [Unknown]
  - Vomiting [Unknown]

NARRATIVE: CASE EVENT DATE: 20170106
